FAERS Safety Report 17842397 (Version 2)
Quarter: 2020Q3

REPORT INFORMATION
  Report Type: Spontaneous
  Country: US (occurrence: US)
  Receive Date: 20200529
  Receipt Date: 20200817
  Transmission Date: 20201103
  Serious: Yes (Hospitalization, Other)
  Sender: FDA-Public Use
  Company Number: US-ASTRAZENECA-2020SE68289

PATIENT
  Sex: Male
  Weight: 101.2 kg

DRUGS (1)
  1. SYMBICORT [Suspect]
     Active Substance: BUDESONIDE\FORMOTEROL FUMARATE DIHYDRATE
     Indication: DYSPNOEA
     Dosage: 160 /4.5 MCG TWO RESPIRATORY INHALATIONS TWICE A DAY
     Route: 055

REACTIONS (6)
  - Myocardial infarction [Unknown]
  - Wrong technique in device usage process [Unknown]
  - Device issue [Unknown]
  - Cardiac failure [Unknown]
  - Dyspnoea [Unknown]
  - Device use issue [Unknown]
